FAERS Safety Report 23260345 (Version 1)
Quarter: 2023Q4

REPORT INFORMATION
  Report Type: Report from Study
  Country: DE (occurrence: DE)
  Receive Date: 20231204
  Receipt Date: 20231204
  Transmission Date: 20240109
  Serious: Yes (Hospitalization)
  Sender: FDA-Public Use
  Company Number: DE-ABBVIE-5518984

PATIENT
  Age: 70 Year
  Sex: Male

DRUGS (2)
  1. CARBIDOPA\LEVODOPA [Suspect]
     Active Substance: CARBIDOPA\LEVODOPA
     Indication: Parkinson^s disease
     Dosage: MD: 12.0 ML; CRD: 4.9 ML/H; ED: 1.5 ML
     Route: 050
     Dates: start: 20210726
  2. CARBIDOPA\LEVODOPA [Suspect]
     Active Substance: CARBIDOPA\LEVODOPA

REACTIONS (3)
  - Device dislocation [Recovered/Resolved]
  - Musculoskeletal stiffness [Unknown]
  - Device issue [Unknown]

NARRATIVE: CASE EVENT DATE: 20231101
